FAERS Safety Report 9374272 (Version 1)
Quarter: 2013Q2

REPORT INFORMATION
  Report Type: Spontaneous
  Country: US (occurrence: None)
  Receive Date: 20130627
  Receipt Date: 20130627
  Transmission Date: 20140414
  Serious: Yes (Hospitalization)
  Sender: FDA-Public Use
  Company Number: None

PATIENT
  Age: 56 Year
  Sex: Female
  Weight: 56.52 kg

DRUGS (1)
  1. METHIMAZOLE [Suspect]
     Indication: HYPERTHYROIDISM
     Dosage: 10 MG DAILY PO
     Route: 048
     Dates: start: 20130501, end: 20130602

REACTIONS (11)
  - Malaise [None]
  - Oropharyngeal pain [None]
  - Ear pain [None]
  - Headache [None]
  - Abdominal discomfort [None]
  - Pyrexia [None]
  - Oral candidiasis [None]
  - Tongue coated [None]
  - Abdominal discomfort [None]
  - Pharyngeal erythema [None]
  - Throat irritation [None]
